FAERS Safety Report 4391133-7 (Version None)
Quarter: 2004Q2

REPORT INFORMATION
  Report Type: 
  Country: None (occurrence: None)
  Receive Date: 20040621
  Receipt Date: 20040108
  Transmission Date: 20050107
  Serious: Yes (Hospitalization, Other)
  Sender: FDA-Public Use
  Company Number: USA-2003-0009673

PATIENT
  Age: 53 Year
  Sex: Female
  Weight: 62.6 kg

DRUGS (17)
  1. OXYCONTIN [Suspect]
     Indication: PAIN
     Dosage: 20 MG, TID, ORAL
     Route: 048
  2. TOPAMAX [Concomitant]
  3. WELLBUTRIN [Concomitant]
  4. REGLAN [Concomitant]
  5. PREVACID [Concomitant]
  6. FLEXERIL [Concomitant]
  7. ZANAFLEX [Concomitant]
  8. SOMA [Concomitant]
  9. DOXEPIN HCL [Concomitant]
  10. BACLOFEN [Concomitant]
  11. KADIAN [Concomitant]
  12. PAXIL [Concomitant]
  13. TOPROL-XL [Concomitant]
  14. PHENERGAN           ^NATRAPHARM^ [Concomitant]
  15. NITROGLYCERIN ^A.L.^ [Concomitant]
  16. KLONOPIN [Concomitant]
  17. PREMARIN [Concomitant]

REACTIONS (18)
  - ABDOMINAL DISTENSION [None]
  - ANAEMIA [None]
  - ANXIETY [None]
  - ARTHRALGIA [None]
  - CHEST PAIN [None]
  - CONJUNCTIVAL HAEMORRHAGE [None]
  - COUGH [None]
  - DEPRESSION [None]
  - DRUG DEPENDENCE [None]
  - DRUG WITHDRAWAL SYNDROME [None]
  - HEADACHE [None]
  - HYPOAESTHESIA [None]
  - NASAL CONGESTION [None]
  - PAIN [None]
  - PAIN IN EXTREMITY [None]
  - PARAESTHESIA [None]
  - PYREXIA [None]
  - WEIGHT DECREASED [None]
